FAERS Safety Report 20042524 (Version 1)
Quarter: 2021Q4

REPORT INFORMATION
  Report Type: Spontaneous
  Country: US (occurrence: US)
  Receive Date: 20211108
  Receipt Date: 20211108
  Transmission Date: 20220304
  Serious: Yes (Life-Threatening, Hospitalization, Other)
  Sender: FDA-Public Use
  Company Number: US-MACLEODS PHARMACEUTICALS US LTD-MAC2021033217

PATIENT

DRUGS (43)
  1. DULOXETINE [Interacting]
     Active Substance: DULOXETINE
     Indication: Major depression
     Dosage: 60 MILLIGRAM, QD, EVERY 1 DAY
     Route: 048
     Dates: end: 202012
  2. DULOXETINE [Interacting]
     Active Substance: DULOXETINE
     Dosage: 30 MILLIGRAM, BID, EVERY 12 HOUR
     Route: 048
     Dates: start: 202012, end: 202102
  3. DULOXETINE [Interacting]
     Active Substance: DULOXETINE
     Dosage: 30 MILLIGRAM, QD, EVERY 1 DAY, BEDTIME
     Route: 048
     Dates: end: 202012
  4. METOPROLOL [Interacting]
     Active Substance: METOPROLOL
     Indication: Hypertension
     Dosage: UNK, DOSE ADJUSTED
     Route: 048
  5. METOPROLOL [Interacting]
     Active Substance: METOPROLOL
     Indication: Cardiac failure
     Dosage: 100 MILLIGRAM, BID, EVERY 12 HOUR
     Route: 048
  6. ACETAMINOPHEN\HYDROCODONE [Interacting]
     Active Substance: ACETAMINOPHEN\HYDROCODONE
     Indication: Pain
     Dosage: UNK, QID, 325/5 MG, AS NEEDED, EVERY 6 HOUR
     Route: 048
     Dates: start: 202012
  7. ACETAMINOPHEN\HYDROCODONE [Interacting]
     Active Substance: ACETAMINOPHEN\HYDROCODONE
     Dosage: UNK, QID, 325/7.5 MG AS NEEDED, EVERY 6 HOUR
     Route: 048
     Dates: start: 202012
  8. PANTOPRAZOLE [Concomitant]
     Active Substance: PANTOPRAZOLE
     Indication: Gastrooesophageal reflux disease
     Dosage: 40 MILLIGRAM, QD
     Route: 048
  9. MELATONIN [Concomitant]
     Active Substance: MELATONIN
     Indication: Insomnia
     Dosage: 5 MILLIGRAM, QD
     Route: 048
  10. ACETAMINOPHEN [Concomitant]
     Active Substance: ACETAMINOPHEN
     Indication: Pain
     Dosage: 650 MILLIGRAM, TID
     Route: 048
  11. ACETAMINOPHEN [Concomitant]
     Active Substance: ACETAMINOPHEN
     Dosage: 650 MILLIGRAM, TID, START DATE: DEC-2020
     Route: 048
  12. NYSTATIN [Concomitant]
     Active Substance: NYSTATIN
     Indication: Candida infection
     Dosage: 10000 [IU]/G, QID, DAILY AS NEEDED
     Route: 048
  13. Ascorbic acid/Carbonyl iron [Concomitant]
     Indication: Supplementation therapy
     Dosage: UNK UNK, QD
     Route: 048
  14. DICLOFENAC [Concomitant]
     Active Substance: DICLOFENAC
     Indication: Pain
     Dosage: 2 GRAM, QID, 6 HOUR, AS NEEDED
     Route: 061
  15. LOPERAMIDE [Concomitant]
     Active Substance: LOPERAMIDE
     Indication: Diarrhoea
     Dosage: 2 MILLIGRAM, QID, DAILY AS NEEDED
     Route: 048
  16. CLONIDINE [Concomitant]
     Active Substance: CLONIDINE
     Indication: Hypertension
     Dosage: 0.1 MILLIGRAM, QD
     Route: 048
  17. CLONIDINE [Concomitant]
     Active Substance: CLONIDINE
     Indication: Cardiac failure
  18. LEVOTHYROXINE [Concomitant]
     Active Substance: LEVOTHYROXINE
     Indication: Hypothyroidism
     Dosage: 88 MICROGRAM, QD
     Route: 048
  19. CHOLECALCIFEROL [Concomitant]
     Active Substance: CHOLECALCIFEROL
     Indication: Supplementation therapy
     Dosage: 2000 INTERNATIONAL UNIT, QD
     Route: 048
  20. AMLODIPINE [Concomitant]
     Active Substance: AMLODIPINE BESYLATE
     Indication: Hypertension
     Dosage: 5 MILLIGRAM, QD
     Route: 048
  21. AMLODIPINE [Concomitant]
     Active Substance: AMLODIPINE BESYLATE
     Indication: Cardiac failure
  22. MORPHINE [Concomitant]
     Active Substance: MORPHINE
     Indication: Pain
     Dosage: 15 MILLIGRAM, TID, AS NEEDED, START DATE: DEC 2020
     Route: 065
  23. MORPHINE [Concomitant]
     Active Substance: MORPHINE
     Dosage: 7.5 MILLIGRAM, TID, AS NEEDED
     Route: 065
     Dates: start: 202012, end: 202012
  24. LIDOCAINE [Concomitant]
     Active Substance: LIDOCAINE
     Indication: Pain
     Dosage: UNK, QD, 1 PATCH AS NEEDED
     Route: 062
     Dates: start: 202012
  25. LIDOCAINE [Concomitant]
     Active Substance: LIDOCAINE
     Dosage: UNK, QD, 1 PATCH AS NEEDED
     Route: 061
  26. INSULIN ASPART [Concomitant]
     Active Substance: INSULIN ASPART
     Indication: Type 2 diabetes mellitus
     Dosage: 26 INTERNATIONAL UNIT, TID, BEFORE MEALS
     Route: 058
  27. GABAPENTIN [Concomitant]
     Active Substance: GABAPENTIN
     Indication: Pain
     Dosage: 600 MILLIGRAM, TID
     Route: 048
     Dates: start: 202011, end: 202101
  28. GABAPENTIN [Concomitant]
     Active Substance: GABAPENTIN
     Dosage: 300 MILLIGRAM, BID, START DATE: FEB 2021
     Route: 048
  29. GABAPENTIN [Concomitant]
     Active Substance: GABAPENTIN
     Dosage: 600 MILLIGRAM, QD
     Route: 048
     Dates: end: 202012
  30. GABAPENTIN [Concomitant]
     Active Substance: GABAPENTIN
     Dosage: 1200 MILLIGRAM, BID
     Route: 048
     Dates: end: 202011
  31. FUROSEMIDE [Concomitant]
     Active Substance: FUROSEMIDE
     Indication: Hypertension
     Dosage: 40 MILLIGRAM, QD
     Route: 048
  32. FUROSEMIDE [Concomitant]
     Active Substance: FUROSEMIDE
     Indication: Cardiac failure
  33. VALSARTAN [Concomitant]
     Active Substance: VALSARTAN
     Indication: Hypertension
     Dosage: 320 MILLIGRAM, QD
     Route: 048
  34. VALSARTAN [Concomitant]
     Active Substance: VALSARTAN
     Indication: Cardiac failure
  35. DRONEDARONE [Concomitant]
     Active Substance: DRONEDARONE
     Indication: Atrial fibrillation
     Dosage: 400 MILLIGRAM, BID, 12 HOUR
     Route: 048
  36. Menthol/Campho/Methyl Salicylate [Concomitant]
     Indication: Pain
     Dosage: UNK UNK, BID, 1 APPLICATION AS NEEDED, 12 HOUR
     Route: 061
  37. Menthol/Campho/Methyl Salicylate [Concomitant]
     Indication: Myalgia
  38. APIXABAN [Concomitant]
     Active Substance: APIXABAN
     Indication: Atrial fibrillation
     Dosage: 5 MILLIGRAM, BID, 12 HOUR
     Route: 048
  39. INSULIN GLARGINE [Concomitant]
     Active Substance: INSULIN GLARGINE
     Indication: Type 2 diabetes mellitus
     Dosage: 20 INTERNATIONAL UNIT, QD
     Route: 058
  40. DESVENLAFAXINE [Concomitant]
     Active Substance: DESVENLAFAXINE
     Indication: Major depression
     Dosage: 50 MILLIGRAM, QD, AS NEEDED
     Route: 065
     Dates: start: 202102
  41. ONDANSETRON [Concomitant]
     Active Substance: ONDANSETRON
     Indication: Nausea
     Dosage: 4 MILLIGRAM, QID, DAILY AS NEEDED, 6 HOUR
     Route: 048
  42. ALLOPURINOL [Concomitant]
     Active Substance: ALLOPURINOL
     Indication: Gout
     Dosage: 300 MILLIGRAM, QD
     Route: 048
  43. CALCITRIOL [Concomitant]
     Active Substance: CALCITRIOL
     Indication: Supplementation therapy
     Dosage: 0.25 MICROGRAM, QD
     Route: 048

REACTIONS (5)
  - Drug ineffective [Unknown]
  - Toxicity to various agents [Unknown]
  - Depression [Recovered/Resolved]
  - Bradycardia [Unknown]
  - Drug interaction [Unknown]
